FAERS Safety Report 13510912 (Version 1)
Quarter: 2017Q2

REPORT INFORMATION
  Report Type: Spontaneous
  Country: US (occurrence: US)
  Receive Date: 20170503
  Receipt Date: 20170503
  Transmission Date: 20170830
  Serious: Yes (Disabling, Other)
  Sender: FDA-Public Use
  Company Number: None

PATIENT
  Age: 77 Year
  Sex: Female
  Weight: 77.4 kg

DRUGS (1)
  1. LEVOFLOXIN [Suspect]
     Active Substance: LEVOFLOXACIN
     Indication: URINARY TRACT INFECTION
     Route: 048
     Dates: start: 20170222, end: 20170228

REACTIONS (4)
  - Musculoskeletal pain [None]
  - Pain in extremity [None]
  - Muscular weakness [None]
  - Tendon disorder [None]

NARRATIVE: CASE EVENT DATE: 20170301
